FAERS Safety Report 8036983-0 (Version None)
Quarter: 2012Q1

REPORT INFORMATION
  Report Type: 
  Country: None (occurrence: None)
  Receive Date: 20120111
  Receipt Date: 20120109
  Transmission Date: 20120608
  Serious: No
  Sender: FDA-Public Use
  Company Number: US-PFIZER INC-2012006806

PATIENT
  Sex: Female
  Weight: 58.957 kg

DRUGS (3)
  1. PREMARIN [Suspect]
     Indication: HORMONE REPLACEMENT THERAPY
     Dosage: UNK
     Route: 048
     Dates: end: 20111201
  2. LEXAPRO [Concomitant]
     Indication: SERUM SEROTONIN DECREASED
     Dosage: 20 MG, DAILY
  3. LISINOPRIL [Concomitant]
     Indication: HYPERTENSION
     Dosage: 20 MG, DAILY

REACTIONS (2)
  - DYSPNOEA EXERTIONAL [None]
  - HOT FLUSH [None]
